FAERS Safety Report 14384541 (Version 1)
Quarter: 2018Q1

REPORT INFORMATION
  Report Type: Spontaneous
  Country: GB (occurrence: GB)
  Receive Date: 20180115
  Receipt Date: 20180115
  Transmission Date: 20180509
  Serious: Yes (Other)
  Sender: FDA-Public Use
  Company Number: GB-MYLANLABS-2018M1002808

PATIENT
  Age: 11 Year
  Sex: Female

DRUGS (4)
  1. PAMIDRONATE [Suspect]
     Active Substance: PAMIDRONATE DISODIUM
     Indication: OSTEOGENESIS IMPERFECTA
     Dosage: CONTINUED ON 2 CONSECUTIVE DAYS, GIVEN EVERY 3 MONTHS; OVERALL 7 YEARS (27 CYCLES) UNTIL AGE 13.4
  2. PAMIDRONATE [Suspect]
     Active Substance: PAMIDRONATE DISODIUM
     Dosage: ON 3 CONSECUTIVE DAYS, GIVEN EVERY 3 MONTHS
  3. VITAMIN D                          /00107901/ [Concomitant]
     Active Substance: ERGOCALCIFEROL
     Indication: VITAMIN D DEFICIENCY
     Dosage: 10000 IU, QD
  4. VITAMIN D                          /00107901/ [Concomitant]
     Active Substance: ERGOCALCIFEROL
     Dosage: 10000 IU, QD

REACTIONS (2)
  - Atypical femur fracture [Unknown]
  - Product use in unapproved indication [Unknown]
